FAERS Safety Report 5262849-5 (Version None)
Quarter: 2007Q1

REPORT INFORMATION
  Report Type: 
  Country: None (occurrence: None)
  Receive Date: 20070312
  Receipt Date: 20070302
  Transmission Date: 20070707
  Serious: Yes (Death, Hospitalization)
  Sender: FDA-Public Use
  Company Number: JP-ROCHE-481427

PATIENT
  Age: 11 Year
  Sex: Male
  Weight: 58 kg

DRUGS (6)
  1. VESANOID [Suspect]
     Route: 048
     Dates: start: 20051128
  2. CYTARABINE [Concomitant]
     Route: 042
     Dates: start: 20051128
  3. DAUNORUBICIN HCL [Concomitant]
     Route: 042
     Dates: start: 20061128
  4. ALLOPURINOL [Concomitant]
     Route: 048
     Dates: start: 20051128
  5. BAKTAR [Concomitant]
     Route: 048
     Dates: start: 20051128
  6. KYTRIL [Concomitant]
     Route: 042
     Dates: start: 20051128

REACTIONS (2)
  - HAEMORRHAGE INTRACRANIAL [None]
  - RETINOIC ACID SYNDROME [None]
